FAERS Safety Report 21062341 (Version 1)
Quarter: 2022Q3

REPORT INFORMATION
  Report Type: Spontaneous
  Country: CA (occurrence: CA)
  Receive Date: 20220711
  Receipt Date: 20220711
  Transmission Date: 20221027
  Serious: Yes (Life-Threatening)
  Sender: FDA-Public Use
  Company Number: CA-AUROBINDO-AUR-APL-2022-024687

PATIENT
  Age: 16 Year
  Sex: Female

DRUGS (1)
  1. CIPROFLOXACIN [Suspect]
     Active Substance: CIPROFLOXACIN
     Indication: Pyelonephritis
     Dosage: 400 MILLIGRAM, TWO TIMES A DAY
     Route: 065

REACTIONS (9)
  - Headache [Recovering/Resolving]
  - Anxiety [Recovering/Resolving]
  - Swollen tongue [Recovering/Resolving]
  - Infusion site pruritus [Recovering/Resolving]
  - Infusion site rash [Recovering/Resolving]
  - Lip swelling [Recovering/Resolving]
  - Nausea [Recovering/Resolving]
  - Paraesthesia oral [Recovering/Resolving]
  - Documented hypersensitivity to administered product [Recovering/Resolving]
